FAERS Safety Report 19867935 (Version 4)
Quarter: 2022Q1

REPORT INFORMATION
  Report Type: Report from Study
  Country: ZA (occurrence: ZA)
  Receive Date: 20210922
  Receipt Date: 20220228
  Transmission Date: 20220423
  Serious: Yes (Death, Other)
  Sender: FDA-Public Use
  Company Number: NVSC2021ZA211890

PATIENT
  Sex: Female

DRUGS (2)
  1. BROLUCIZUMAB [Suspect]
     Active Substance: BROLUCIZUMAB
     Indication: Neovascular age-related macular degeneration
     Dosage: 27.6 MG IN 0.23 ML, QMO
     Route: 047
     Dates: start: 20210706
  2. BROLUCIZUMAB [Suspect]
     Active Substance: BROLUCIZUMAB
     Dosage: 27.6 MG IN 0.23 ML, QMO
     Route: 047
     Dates: start: 20210810

REACTIONS (2)
  - Death [Fatal]
  - Brain neoplasm [Unknown]
